FAERS Safety Report 18478064 (Version 1)
Quarter: 2020Q4

REPORT INFORMATION
  Report Type: Report from Study
  Country: CA (occurrence: CA)
  Receive Date: 20201108
  Receipt Date: 20201108
  Transmission Date: 20210114
  Serious: Yes (Hospitalization, Other)
  Sender: FDA-Public Use
  Company Number: CA-ROCHE-2689626

PATIENT

DRUGS (1)
  1. RITUXIMAB. [Suspect]
     Active Substance: RITUXIMAB
     Indication: B-CELL LYMPHOMA
     Dosage: RITUXIMAB 28100MG/10ML CA VL, 1*500MG/50ML CA VL AND 1*1400MG/11.7ML CA VL?ON 30/OCT/2016, THE PATIE
     Route: 042
     Dates: start: 20161021

REACTIONS (2)
  - Staphylococcal bacteraemia [Recovered/Resolved]
  - Transfusion reaction [Recovered/Resolved]

NARRATIVE: CASE EVENT DATE: 20161107
